FAERS Safety Report 15924961 (Version 2)
Quarter: 2019Q1

REPORT INFORMATION
  Report Type: Spontaneous
  Country: US (occurrence: US)
  Receive Date: 20190205
  Receipt Date: 20190219
  Transmission Date: 20190417
  Serious: No
  Sender: FDA-Public Use
  Company Number: US-ALLERGAN-1836040US

PATIENT
  Age: 66 Year
  Sex: Female

DRUGS (1)
  1. BOTOX COSMETIC [Suspect]
     Active Substance: ONABOTULINUMTOXINA
     Indication: SKIN COSMETIC PROCEDURE
     Dosage: UNK, SINGLE
     Route: 030
     Dates: start: 20180703, end: 20180703

REACTIONS (3)
  - Skin exfoliation [Recovered/Resolved]
  - Erythema of eyelid [Recovered/Resolved]
  - Rash [Recovered/Resolved]

NARRATIVE: CASE EVENT DATE: 20180704
